FAERS Safety Report 6502048-X (Version None)
Quarter: 2009Q4

REPORT INFORMATION
  Report Type: 
  Country: None (occurrence: None)
  Receive Date: 20091214
  Receipt Date: 20091125
  Transmission Date: 20100525
  Serious: Yes (Other)
  Sender: FDA-Public Use
  Company Number: DSA_42117_2009

PATIENT
  Age: 10 Year
  Sex: Male

DRUGS (6)
  1. ENALAPRIL (VASOTEC-ENALAPRIL MALEATE) [Suspect]
     Indication: HYPERTENSION
     Dosage: DF ORAL
     Route: 048
  2. CARVEDILOL [Suspect]
     Indication: HYPERTENSION
     Dosage: DF
  3. AMLODIPINE [Suspect]
     Indication: HYPERTENSION
     Dosage: DF
  4. CANDESARTAN CILEXETIL [Suspect]
     Indication: HYPERTENSION
     Dosage: DF
  5. DOXAZOSIN MESYLATE [Suspect]
     Indication: HYPERTENSION
     Dosage: DF
  6. IMIDAPRIL (IMIDAPRIL) [Suspect]
     Indication: HYPERTENSION
     Dosage: DF

REACTIONS (4)
  - GROWTH HORMONE DEFICIENCY [None]
  - HYPOAESTHESIA [None]
  - INSOMNIA [None]
  - MONOPLEGIA [None]
